FAERS Safety Report 24655308 (Version 1)
Quarter: 2024Q4

REPORT INFORMATION
  Report Type: Spontaneous
  Country: US (occurrence: US)
  Receive Date: 20241123
  Receipt Date: 20241123
  Transmission Date: 20250115
  Serious: No
  Sender: Kenvue
  Company Number: US-KENVUE-20241103774

PATIENT

DRUGS (1)
  1. ZYRTEC [Suspect]
     Active Substance: CETIRIZINE HYDROCHLORIDE
     Indication: Asthma
     Dosage: 2 AM + 2 PM (3 MORE TABS A DAY)
     Route: 065

REACTIONS (3)
  - Urticaria [Unknown]
  - Off label use [Unknown]
  - Prescribed overdose [Unknown]
